FAERS Safety Report 5360209-X (Version None)
Quarter: 2007Q2

REPORT INFORMATION
  Report Type: 
  Country: None (occurrence: None)
  Receive Date: 20070618
  Receipt Date: 20070612
  Transmission Date: 20071010
  Serious: Yes (Hospitalization)
  Sender: FDA-Public Use
  Company Number: PHBS2007BR09905

PATIENT
  Age: 70 Year
  Sex: Male
  Weight: 90 kg

DRUGS (3)
  1. DIOVAN [Suspect]
  2. TRAVATAN [Concomitant]
     Indication: INTRAOCULAR PRESSURE TEST
  3. FORASEQ [Suspect]
     Indication: RESPIRATORY DISORDER
     Dosage: FORM 12 / BUDE 400 UG/DAY
     Dates: start: 20060501

REACTIONS (6)
  - BACK PAIN [None]
  - CHEST PAIN [None]
  - COUGH [None]
  - DYSPNOEA [None]
  - RESPIRATORY DISORDER [None]
  - SECRETION DISCHARGE [None]
